FAERS Safety Report 5062794-4 (Version None)
Quarter: 2006Q3

REPORT INFORMATION
  Report Type: 
  Country: None (occurrence: None)
  Receive Date: 20060724
  Receipt Date: 20060710
  Transmission Date: 20061208
  Serious: Yes (Hospitalization)
  Sender: FDA-Public Use
  Company Number: 2006088102

PATIENT
  Age: 90 Year
  Sex: Female

DRUGS (1)
  1. ATARAX [Suspect]
     Dosage: 1 IN 1 D, ORAL
     Route: 048
     Dates: start: 20050121, end: 20050121

REACTIONS (3)
  - AGITATION [None]
  - RED BLOOD CELL COUNT ABNORMAL [None]
  - URINARY RETENTION [None]
